FAERS Safety Report 7927636-5 (Version None)
Quarter: 2011Q4

REPORT INFORMATION
  Report Type: 
  Country: None (occurrence: None)
  Receive Date: 20111118
  Receipt Date: 20111107
  Transmission Date: 20120403
  Serious: Yes (Other)
  Sender: FDA-Public Use
  Company Number: JP-SANOFI-AVENTIS-2011SA065808

PATIENT
  Age: 59 Year
  Sex: Male

DRUGS (2)
  1. ZOLPIDEM [Suspect]
     Route: 048
  2. ZOLPIDEM [Suspect]
     Dosage: DOSE: 7-8 TABLETS.
     Route: 048

REACTIONS (3)
  - MIOSIS [None]
  - LOSS OF CONSCIOUSNESS [None]
  - OVERDOSE [None]
